FAERS Safety Report 25643425 (Version 1)
Quarter: 2025Q3

REPORT INFORMATION
  Report Type: Spontaneous
  Country: US (occurrence: US)
  Receive Date: 20250805
  Receipt Date: 20250805
  Transmission Date: 20251020
  Serious: Yes (Life-Threatening, Hospitalization)
  Sender: Unknown Manufacturer
  Company Number: US-MLMSERVICE-20250722-PI581917-00052-2

PATIENT
  Age: 73 Year
  Sex: Male

DRUGS (1)
  1. AMOXICILLIN [Suspect]
     Active Substance: AMOXICILLIN
     Indication: Antibiotic prophylaxis
     Route: 048
     Dates: start: 2024

REACTIONS (3)
  - Endocarditis bacterial [Recovering/Resolving]
  - Bacterial translocation [Recovered/Resolved]
  - Lactobacillus bacteraemia [Recovered/Resolved]

NARRATIVE: CASE EVENT DATE: 20240101
